FAERS Safety Report 7767772-X (Version None)
Quarter: 2011Q3

REPORT INFORMATION
  Report Type: 
  Country: None (occurrence: None)
  Receive Date: 20110922
  Receipt Date: 20110415
  Transmission Date: 20111222
  Serious: Yes (Hospitalization)
  Sender: FDA-Public Use
  Company Number: US-ASTRAZENECA-2011SE22005

PATIENT
  Age: 34 Year
  Sex: Female
  Weight: 99.8 kg

DRUGS (7)
  1. INSULIN [Suspect]
     Dosage: 400 UNITS
     Route: 065
  2. ANTIBIOTIC [Concomitant]
     Indication: URINARY TRACT INFECTION
     Route: 048
  3. SEROQUEL XR [Suspect]
     Indication: BIPOLAR DISORDER
     Route: 048
     Dates: start: 20110302, end: 20110322
  4. SEROQUEL XR [Suspect]
     Indication: BORDERLINE PERSONALITY DISORDER
     Route: 048
     Dates: start: 20110302, end: 20110322
  5. IBUPROFEN [Concomitant]
     Route: 048
  6. SEROQUEL XR [Suspect]
     Indication: ANXIETY
     Route: 048
     Dates: start: 20110302, end: 20110322
  7. SEROQUEL XR [Suspect]
     Indication: POST-TRAUMATIC STRESS DISORDER
     Route: 048
     Dates: start: 20110302, end: 20110322

REACTIONS (3)
  - SUICIDE ATTEMPT [None]
  - FEELING ABNORMAL [None]
  - DRUG DOSE OMISSION [None]
